FAERS Safety Report 7388747-9 (Version None)
Quarter: 2011Q2

REPORT INFORMATION
  Report Type: 
  Country: None (occurrence: None)
  Receive Date: 20110401
  Receipt Date: 20110221
  Transmission Date: 20111010
  Serious: Yes (Other)
  Sender: FDA-Public Use
  Company Number: JP-ASTELLAS-2011JP000518

PATIENT
  Sex: Female
  Weight: 58 kg

DRUGS (7)
  1. OMEPRAL [Concomitant]
     Dosage: 40 MG, UNKNOWN/D
     Route: 048
  2. MUCOSTA [Concomitant]
     Dosage: UNK
     Route: 048
  3. ITOROL [Concomitant]
     Dosage: 20 MG, BID
     Route: 048
     Dates: start: 20040101
  4. KELNAC [Concomitant]
     Dosage: UNK
     Route: 048
  5. PREDONINE [Concomitant]
     Dosage: 5 MG, BID
     Route: 048
  6. VESICARE [Suspect]
     Indication: HYPERTONIC BLADDER
     Dosage: 2.5 MG, QID
     Route: 048
     Dates: start: 20091201, end: 20110114
  7. ZADITEN [Concomitant]
     Dosage: UNK
     Route: 048

REACTIONS (3)
  - ICHTHYOSIS [None]
  - PALPITATIONS [None]
  - DRY MOUTH [None]
